FAERS Safety Report 6544527-5 (Version None)
Quarter: 2010Q1

REPORT INFORMATION
  Report Type: 
  Country: None (occurrence: None)
  Receive Date: 20100121
  Receipt Date: 20091221
  Transmission Date: 20100710
  Serious: No
  Sender: FDA-Public Use
  Company Number: US-BAYER-200943530NA

PATIENT
  Sex: Male

DRUGS (2)
  1. LEVITRA [Suspect]
     Indication: ERECTILE DYSFUNCTION
  2. CLARITHROMYCIN [Concomitant]
     Dates: end: 20091216

REACTIONS (1)
  - ERECTILE DYSFUNCTION [None]
